FAERS Safety Report 10640325 (Version 2)
Quarter: 2014Q4

REPORT INFORMATION
  Report Type: Spontaneous
  Country: JP (occurrence: JP)
  Receive Date: 20141209
  Receipt Date: 20141209
  Transmission Date: 20150529
  Serious: Yes (Hospitalization)
  Sender: FDA-Public Use
  Company Number: JP-ELI_LILLY_AND_COMPANY-JP201410009417

PATIENT
  Sex: Male

DRUGS (7)
  1. SEROQUEL [Concomitant]
     Active Substance: QUETIAPINE FUMARATE
     Dosage: 2 DF, UNK
  2. DEPAS [Concomitant]
     Active Substance: ETIZOLAM
     Dosage: 3 DF, DAILY
     Route: 048
  3. AKINETON [Concomitant]
     Active Substance: BIPERIDEN HYDROCHLORIDE
     Dosage: 3 DF, UNK
  4. ZYPREXA [Suspect]
     Active Substance: OLANZAPINE
     Indication: PRODUCT USED FOR UNKNOWN INDICATION
     Dosage: 2 DF, UNK
     Route: 048
  5. LEVOTOMIN [Concomitant]
     Active Substance: LEVOMEPROMAZINE
     Dosage: 7 DF, UNK
  6. LEXOTAN [Concomitant]
     Active Substance: BROMAZEPAM
     Dosage: 2 DF, UNK
  7. RIVOTRIL [Concomitant]
     Active Substance: CLONAZEPAM
     Dosage: 2 DF, UNK

REACTIONS (2)
  - Faeces discoloured [Recovered/Resolved]
  - Fracture [Unknown]
